FAERS Safety Report 19882109 (Version 2)
Quarter: 2021Q4

REPORT INFORMATION
  Report Type: Spontaneous
  Country: US (occurrence: US)
  Receive Date: 20210925
  Receipt Date: 20211223
  Transmission Date: 20220303
  Serious: No
  Sender: FDA-Public Use
  Company Number: US-SA-SAC20210921001158

PATIENT
  Age: 20 Year
  Sex: Female
  Weight: 63.5 kg

DRUGS (8)
  1. DUPIXENT [Suspect]
     Active Substance: DUPILUMAB
     Indication: Asthma
     Dosage: 200MG/1.14ML, 200 MG, QOW
     Route: 058
     Dates: start: 202003
  2. PREDNISONE [Concomitant]
     Active Substance: PREDNISONE
  3. DEXILANT [Concomitant]
     Active Substance: DEXLANSOPRAZOLE
     Indication: Gastrooesophageal reflux disease
  4. TERCONAZOLE [Concomitant]
     Active Substance: TERCONAZOLE
  5. DAPSONE [Concomitant]
     Active Substance: DAPSONE
  6. EPIPEN [Concomitant]
     Active Substance: EPINEPHRINE
  7. PROAIR HFA [Concomitant]
     Active Substance: ALBUTEROL SULFATE
  8. NORETHINDRONE ACETATE AND ETHINYL ESTRADIOL [Concomitant]
     Active Substance: ETHINYL ESTRADIOL\NORETHINDRONE ACETATE

REACTIONS (1)
  - Weight increased [Unknown]

NARRATIVE: CASE EVENT DATE: 20200101
